FAERS Safety Report 7087241-2 (Version None)
Quarter: 2010Q4

REPORT INFORMATION
  Report Type: 
  Country: None (occurrence: None)
  Receive Date: 20101107
  Receipt Date: 20090629
  Transmission Date: 20110411
  Serious: Yes (Other)
  Sender: FDA-Public Use
  Company Number: PHHY2009US66534

PATIENT
  Sex: Male

DRUGS (1)
  1. EXJADE [Suspect]
     Dosage: 2000 MG, QD
     Route: 048
     Dates: start: 20090624

REACTIONS (4)
  - ABDOMINAL PAIN [None]
  - BLOOD CREATININE INCREASED [None]
  - MALAISE [None]
  - NAUSEA [None]
